FAERS Safety Report 16360311 (Version 1)
Quarter: 2019Q2

REPORT INFORMATION
  Report Type: Spontaneous
  Country: US (occurrence: US)
  Receive Date: 20190528
  Receipt Date: 20190528
  Transmission Date: 20190711
  Serious: Yes (Death)
  Sender: FDA-Public Use
  Company Number: US-ROCHE-2326989

PATIENT
  Age: 49 Year
  Sex: Male

DRUGS (8)
  1. KALYDECO [Concomitant]
     Active Substance: IVACAFTOR
     Route: 065
  2. IPRATROPIUM [Concomitant]
     Active Substance: IPRATROPIUM
     Route: 065
  3. CREON [Concomitant]
     Active Substance: PANCRELIPASE AMYLASE\PANCRELIPASE LIPASE\PANCRELIPASE PROTEASE
     Route: 065
  4. PULMOZYME [Suspect]
     Active Substance: DORNASE ALFA
     Indication: CYSTIC FIBROSIS
     Dosage: INHALE 1 VIAL VIA NEBULIZER EVERY DAY AS DIRECTED
     Route: 065
  5. ALBUTEROL SULFATE. [Concomitant]
     Active Substance: ALBUTEROL SULFATE
     Route: 065
  6. LEXAPRO [Concomitant]
     Active Substance: ESCITALOPRAM OXALATE
     Route: 065
  7. ZOCOR [Concomitant]
     Active Substance: SIMVASTATIN
     Route: 065
  8. SODIUM CHLORIDE. [Concomitant]
     Active Substance: SODIUM CHLORIDE
     Route: 065

REACTIONS (1)
  - Death [Fatal]

NARRATIVE: CASE EVENT DATE: 20190504
